FAERS Safety Report 8969030 (Version 1)
Quarter: 2012Q4

REPORT INFORMATION
  Report Type: 
  Country: US (occurrence: US)
  Receive Date: 20121218
  Receipt Date: 20121218
  Transmission Date: 20130627
  Serious: No
  Sender: FDA-Public Use
  Company Number: US-BRISTOL-MYERS SQUIBB COMPANY-16349763

PATIENT
  Age: 66 Year
  Sex: Male
  Weight: 77.1 kg

DRUGS (4)
  1. ABILIFY TABS 5 MG [Suspect]
     Indication: DEPRESSION
  2. LORAZEPAM [Concomitant]
  3. SYMBYAX [Concomitant]
  4. LEXAPRO [Concomitant]

REACTIONS (1)
  - Drug ineffective [Unknown]
